FAERS Safety Report 11248913 (Version 2)
Quarter: 2015Q3

REPORT INFORMATION
  Report Type: Spontaneous
  Country: US (occurrence: None)
  Receive Date: 20150630
  Receipt Date: 20150720
  Transmission Date: 20151125
  Serious: Yes (Hospitalization)
  Sender: FDA-Public Use
  Company Number: US-KEDRION-2015061

PATIENT
  Age: 0 Day

DRUGS (1)
  1. RHOGAM [Suspect]
     Active Substance: HUMAN RHO(D) IMMUNE GLOBULIN
     Indication: RHESUS ANTIGEN NEGATIVE
     Route: 064
     Dates: start: 20150601

REACTIONS (3)
  - Premature baby [None]
  - Maternal drugs affecting foetus [None]
  - Caesarean section [None]

NARRATIVE: CASE EVENT DATE: 20150610
